FAERS Safety Report 7089389-5 (Version None)
Quarter: 2010Q4

REPORT INFORMATION
  Report Type: 
  Country: None (occurrence: None)
  Receive Date: 20101108
  Receipt Date: 20100917
  Transmission Date: 20110411
  Serious: No
  Sender: FDA-Public Use
  Company Number: US-BAYER-201021554BCC

PATIENT
  Age: 68 Year
  Sex: Female
  Weight: 91 kg

DRUGS (25)
  1. ALEVE (CAPLET) [Suspect]
     Indication: PAIN
     Dosage: TOTAL DAILY DOSE: 3520 MG  UNIT DOSE: 220 MG
     Route: 048
     Dates: start: 20100501
  2. VIT E [Concomitant]
  3. VITAMIN B-12 [Concomitant]
  4. CALCIUM [Concomitant]
  5. ASPIRIN [Concomitant]
  6. STOOL SOFTENERS [Concomitant]
  7. GARLIC [Concomitant]
  8. PLAVIX [Concomitant]
  9. MAG OXIDE [Concomitant]
  10. SYNTHROID [Concomitant]
  11. VESICARE [Concomitant]
  12. CYTOMEL [Concomitant]
  13. FUROSEMIDE [Concomitant]
  14. METOLAZONE [Concomitant]
  15. PROTONIX [Concomitant]
  16. AMITRIPTYLINE HCL [Concomitant]
  17. TRAMADOL HCL [Concomitant]
  18. CALCIPROL [Concomitant]
  19. LYRICA [Concomitant]
  20. LIDODERM [Concomitant]
  21. ESTRADIOL [Concomitant]
  22. PRISTIQ [Concomitant]
  23. MIRAPEX [Concomitant]
  24. VITAMIN D3 [Concomitant]
  25. KLOR-CON [Concomitant]

REACTIONS (1)
  - NO ADVERSE EVENT [None]
